FAERS Safety Report 18096540 (Version 1)
Quarter: 2020Q3

REPORT INFORMATION
  Report Type: Other
  Country: CN (occurrence: CN)
  Receive Date: 20200730
  Receipt Date: 20200730
  Transmission Date: 20201103
  Serious: Yes (Hospitalization)
  Sender: FDA-Public Use
  Company Number: CN-GE HEALTHCARE LIFE SCIENCES-2020CSU003280

PATIENT

DRUGS (4)
  1. OMNIPAQUE [Suspect]
     Active Substance: IOHEXOL
     Indication: COMPUTERISED TOMOGRAM
  2. POLYETHYLENE GLYCOL ELECTROLYTES POWDER (2) [Suspect]
     Active Substance: POLYETHYLENE GLYCOL 4000\POTASSIUM CHLORIDE\SODIUM BICARBONATE\SODIUM CHLORIDE\SODIUM SULFATE ANHYDROUS
     Indication: GASTROINTESTINAL DISORDER
     Dosage: 137.12 GM, QD
     Route: 048
     Dates: start: 20200706, end: 20200706
  3. OMNIPAQUE [Suspect]
     Active Substance: IOHEXOL
     Indication: SCAN ADRENAL GLAND
     Dosage: 100 ML, SINGLE
     Route: 040
     Dates: start: 20200706, end: 20200706
  4. OMNIPAQUE [Suspect]
     Active Substance: IOHEXOL
     Indication: ADENOMYOSIS

REACTIONS (10)
  - Hypersensitivity [Recovered/Resolved]
  - Dyspnoea [Recovered/Resolved]
  - Hypoaesthesia [Recovered/Resolved]
  - Dizziness [Recovered/Resolved]
  - Muscle twitching [Recovered/Resolved]
  - Rash [Recovered/Resolved]
  - Diarrhoea [Recovered/Resolved]
  - Flushing [Recovered/Resolved]
  - Musculoskeletal stiffness [Recovered/Resolved]
  - Erythema [Recovered/Resolved]

NARRATIVE: CASE EVENT DATE: 20200706
